FAERS Safety Report 10080576 (Version 1)
Quarter: 2014Q2

REPORT INFORMATION
  Report Type: Report from Study
  Country: ZA (occurrence: ZA)
  Receive Date: 20140416
  Receipt Date: 20140416
  Transmission Date: 20141212
  Serious: Yes (Death, Other)
  Sender: FDA-Public Use
  Company Number: ZA-ROCHE-1381816

PATIENT
  Age: 35 Year
  Sex: Male

DRUGS (9)
  1. RECORMON [Suspect]
     Indication: NEPHROGENIC ANAEMIA
     Dosage: 4000I TIMES THRICE WEEKLY
     Route: 058
     Dates: start: 2008
  2. CELLCEPT [Suspect]
     Indication: PRODUCT USED FOR UNKNOWN INDICATION
     Dosage: 1.5MG TWICE A DAY
     Route: 065
  3. VALCYTE [Suspect]
     Indication: PRODUCT USED FOR UNKNOWN INDICATION
     Route: 065
  4. CARDURA [Concomitant]
     Route: 065
  5. ADALAT [Concomitant]
     Dosage: (ADALAT SR)
     Route: 065
  6. LASIX [Concomitant]
     Route: 065
  7. LOSEC [Concomitant]
     Dosage: 20MG DAILY
     Route: 065
  8. RIDAQ [Concomitant]
     Route: 065
  9. PROGRAF [Concomitant]
     Route: 065

REACTIONS (2)
  - Death [Fatal]
  - Peritonitis [Unknown]
